FAERS Safety Report 25318399 (Version 1)
Quarter: 2025Q2

REPORT INFORMATION
  Report Type: Spontaneous
  Country: US (occurrence: US)
  Receive Date: 20250515
  Receipt Date: 20250515
  Transmission Date: 20250716
  Serious: Yes (Life-Threatening, Hospitalization)
  Sender: LUPIN
  Company Number: US-LUPIN PHARMACEUTICALS INC.-2025-04022

PATIENT
  Age: 19 Year
  Sex: Female

DRUGS (4)
  1. METHERGINE [Suspect]
     Active Substance: METHYLERGONOVINE MALEATE
     Indication: Uterine atony
  2. PITOCIN [Suspect]
     Active Substance: OXYTOCIN
     Indication: Uterine atony
  3. PITOCIN [Suspect]
     Active Substance: OXYTOCIN
  4. HEMABATE [Suspect]
     Active Substance: CARBOPROST TROMETHAMINE
     Indication: Uterine atony

REACTIONS (1)
  - Drug ineffective [Unknown]
